FAERS Safety Report 21878990 (Version 2)
Quarter: 2023Q1

REPORT INFORMATION
  Report Type: Spontaneous
  Country: US (occurrence: US)
  Receive Date: 20230118
  Receipt Date: 20230208
  Transmission Date: 20230417
  Serious: Yes (Life-Threatening, Hospitalization)
  Sender: FDA-Public Use
  Company Number: US-PFIZER INC-202300022805

PATIENT
  Age: 38 Year
  Sex: Female
  Weight: 65.76 kg

DRUGS (1)
  1. PAXLOVID [Suspect]
     Active Substance: NIRMATRELVIR\RITONAVIR
     Indication: COVID-19 treatment
     Dosage: 3 DF, 2X/DAY (TAKE 2 PINK TABLETS OF NIRMATRELVIR BY MOUTH 2 TIMES EACH DAY)
     Route: 048
     Dates: start: 20221101, end: 20221104

REACTIONS (2)
  - Suicidal ideation [Recovered/Resolved with Sequelae]
  - Gastric disorder [Recovered/Resolved with Sequelae]

NARRATIVE: CASE EVENT DATE: 20221101
